FAERS Safety Report 13384941 (Version 1)
Quarter: 2017Q1

REPORT INFORMATION
  Report Type: Spontaneous
  Country: US (occurrence: US)
  Receive Date: 20170329
  Receipt Date: 20170329
  Transmission Date: 20170429
  Serious: Yes (Other)
  Sender: FDA-Public Use
  Company Number: US-PFIZER INC-2017128621

PATIENT
  Sex: Female

DRUGS (6)
  1. METHOTREXATE SODIUM. [Suspect]
     Active Substance: METHOTREXATE SODIUM
     Dosage: UNK (12 DOSES)
     Route: 037
  2. HYPER CVAD [Suspect]
     Active Substance: CYCLOPHOSPHAMIDE\CYTARABINE\DEXAMETHASONE\DOXORUBICIN\METHOTREXATE\VINCRISTINE
     Dosage: UNK
     Dates: start: 20160728
  3. CYTARABINE. [Suspect]
     Active Substance: CYTARABINE
     Dosage: UNK (12 DOSES)
     Route: 037
  4. BLINATUMOMAB [Suspect]
     Active Substance: BLINATUMOMAB
     Indication: ACUTE LYMPHOCYTIC LEUKAEMIA
     Dosage: UNK UNK, CYCLIC
     Dates: start: 20170224
  5. HYPER CVAD [Suspect]
     Active Substance: CYCLOPHOSPHAMIDE\CYTARABINE\DEXAMETHASONE\DOXORUBICIN\METHOTREXATE\VINCRISTINE
     Dosage: UNK
     Dates: start: 20170104
  6. IPHOSPHAMIDE [Suspect]
     Active Substance: IFOSFAMIDE
     Dosage: UNK
     Dates: start: 20170206

REACTIONS (2)
  - Thrombocytopenia [Unknown]
  - Neoplasm progression [Unknown]
